FAERS Safety Report 24355073 (Version 1)
Quarter: 2024Q3

REPORT INFORMATION
  Report Type: Spontaneous
  Country: CA (occurrence: CA)
  Receive Date: 20240923
  Receipt Date: 20240923
  Transmission Date: 20241017
  Serious: Yes (Hospitalization)
  Sender: JOHNSON AND JOHNSON
  Company Number: CA-BAYER-2024A133659

PATIENT
  Age: 85 Year
  Sex: Female

DRUGS (9)
  1. XARELTO [Suspect]
     Active Substance: RIVAROXABAN
     Indication: Product used for unknown indication
     Dosage: 20 MG, QD
     Route: 048
  2. AMLODIPINE [Concomitant]
     Active Substance: AMLODIPINE BESYLATE
  3. ASPIRIN [Concomitant]
     Active Substance: ASPIRIN
     Dosage: 81 MG, QD
  4. BIMATOPROST [Concomitant]
     Active Substance: BIMATOPROST
  5. BRIMONIDINE [Concomitant]
     Active Substance: BRIMONIDINE TARTRATE
  6. HYDROCHLOROTHIAZIDE [Concomitant]
     Active Substance: HYDROCHLOROTHIAZIDE
  7. IBUPROFEN [Concomitant]
     Active Substance: IBUPROFEN
  8. ROSUVASTATIN [Concomitant]
     Active Substance: ROSUVASTATIN\ROSUVASTATIN CALCIUM
  9. TIMOLOL [Concomitant]
     Active Substance: TIMOLOL

REACTIONS (7)
  - Haematemesis [Not Recovered/Not Resolved]
  - Dyspnoea [Not Recovered/Not Resolved]
  - Haemoglobin abnormal [Not Recovered/Not Resolved]
  - Melaena [Not Recovered/Not Resolved]
  - Oedema [Not Recovered/Not Resolved]
  - Pain in extremity [Not Recovered/Not Resolved]
  - Oedema peripheral [Not Recovered/Not Resolved]
